FAERS Safety Report 8122211-4 (Version None)
Quarter: 2012Q1

REPORT INFORMATION
  Report Type: 
  Country: None (occurrence: None)
  Receive Date: 20120208
  Receipt Date: 20120124
  Transmission Date: 20120608
  Serious: Yes (Hospitalization)
  Sender: FDA-Public Use
  Company Number: JP-ROCHE-1014743

PATIENT
  Age: 66 Year
  Sex: Male

DRUGS (1)
  1. ACTEMRA [Suspect]
     Indication: RHEUMATOID ARTHRITIS
     Route: 041
     Dates: start: 20090807, end: 20091001

REACTIONS (4)
  - RHEUMATOID VASCULITIS [None]
  - HYPOAESTHESIA [None]
  - ERYTHEMA NODOSUM [None]
  - GLOMERULONEPHRITIS [None]
